FAERS Safety Report 7099836-0 (Version None)
Quarter: 2010Q4

REPORT INFORMATION
  Report Type: 
  Country: None (occurrence: None)
  Receive Date: 20101112
  Receipt Date: 20101104
  Transmission Date: 20110411
  Serious: Yes (Hospitalization, Other)
  Sender: FDA-Public Use
  Company Number: US-US-EMD SERONO, INC.-7026003

PATIENT
  Sex: Female

DRUGS (2)
  1. REBIF [Suspect]
     Indication: MULTIPLE SCLEROSIS
     Route: 058
  2. REBIF [Suspect]
     Route: 058
     Dates: start: 20100914

REACTIONS (8)
  - CONCUSSION [None]
  - DEPRESSION [None]
  - FALL [None]
  - PROGRESSIVE MULTIPLE SCLEROSIS [None]
  - SPINAL COLUMN STENOSIS [None]
  - THINKING ABNORMAL [None]
  - TYMPANIC MEMBRANE PERFORATION [None]
  - UPPER LIMB FRACTURE [None]
